FAERS Safety Report 7938918-5 (Version None)
Quarter: 2011Q4

REPORT INFORMATION
  Report Type: 
  Country: None (occurrence: None)
  Receive Date: 20111124
  Receipt Date: 20111116
  Transmission Date: 20120403
  Serious: Yes (Other)
  Sender: FDA-Public Use
  Company Number: US-JNJFOC-20111107820

PATIENT
  Sex: Male

DRUGS (1)
  1. FENTANYL-100 [Suspect]
     Indication: BACK PAIN
     Dosage: 150 UG/HR (ONE 100UG/HR PATCH-(NDC#0781-7244-55) AND ONE 50 UG/HR PATCH (NDC# 0781-7242-55)
     Route: 062

REACTIONS (2)
  - AGGRESSION [None]
  - DRUG INEFFECTIVE [None]
